FAERS Safety Report 9625435 (Version 1)
Quarter: 2013Q4

REPORT INFORMATION
  Report Type: Report from Study
  Country: IT (occurrence: IT)
  Receive Date: 20131016
  Receipt Date: 20131016
  Transmission Date: 20140711
  Serious: Yes (Other)
  Sender: FDA-Public Use
  Company Number: IT-CELGENEUS-083-21880-13100762

PATIENT
  Age: 57 Year
  Sex: Male

DRUGS (3)
  1. REVLIMID [Suspect]
     Indication: PLASMA CELL MYELOMA
     Route: 048
     Dates: end: 20091116
  2. MELPHALAN [Suspect]
     Indication: PLASMA CELL MYELOMA
     Route: 065
     Dates: end: 20091116
  3. PREDNISONE [Suspect]
     Indication: PLASMA CELL MYELOMA
     Route: 065
     Dates: end: 20091116

REACTIONS (1)
  - Laryngeal squamous cell carcinoma [Unknown]
